FAERS Safety Report 8746311 (Version 2)
Quarter: 2012Q4

REPORT INFORMATION
  Report Type: 
  Country: US (occurrence: US)
  Receive Date: 20120827
  Receipt Date: 20120911
  Transmission Date: 20130627
  Serious: Yes (Other)
  Sender: FDA-Public Use
  Company Number: US-JNJFOC-20120604890

PATIENT
  Age: 55 Year
  Sex: Female
  Weight: 56.7 kg

DRUGS (12)
  1. BENADRYL ALLERGY ULTRATAB [Suspect]
     Indication: HYPERSENSITIVITY
     Route: 048
     Dates: start: 20120608
  2. DIOVAN HCT [Concomitant]
     Indication: BLOOD PRESSURE
     Route: 065
  3. DILTIAZEM [Concomitant]
     Indication: CARDIAC DISORDER
     Route: 065
  4. XANAX [Concomitant]
     Indication: ANXIETY
     Route: 065
  5. DEXILANT [Concomitant]
     Indication: GASTRIC DISORDER
     Route: 065
  6. HYDROCODONE [Concomitant]
     Indication: PAIN
     Route: 065
  7. OXYGEN [Concomitant]
     Route: 065
  8. BLOOD PRESSURE MEDICATION NOS [Concomitant]
     Route: 065
  9. HEART MEDICATION (UNKNOWN) [Concomitant]
     Route: 065
  10. ANXIETY MEDICATION [Concomitant]
     Route: 065
  11. ACID REFLUX MEDICATION [Concomitant]
     Route: 065
  12. INHALER (UNSPECIFIED) [Concomitant]
     Route: 065

REACTIONS (9)
  - Tinnitus [Unknown]
  - Dyspnoea [Not Recovered/Not Resolved]
  - Erythema [Unknown]
  - Burning sensation [Unknown]
  - Swelling face [Unknown]
  - Heart rate increased [Unknown]
  - Burning sensation [Not Recovered/Not Resolved]
  - Off label use [Unknown]
  - Therapeutic response unexpected [Unknown]
